FAERS Safety Report 4398504-3 (Version None)
Quarter: 2004Q3

REPORT INFORMATION
  Report Type: 
  Country: None (occurrence: None)
  Receive Date: 20040713
  Receipt Date: 20040628
  Transmission Date: 20050211
  Serious: Yes (Hospitalization)
  Sender: FDA-Public Use
  Company Number: 2004221673DK

PATIENT
  Age: 49 Year
  Sex: Male
  Weight: 80 kg

DRUGS (1)
  1. DEPO-MEDROL [Suspect]
     Dosage: 80 MG, INTRAMUSCULAR
     Route: 030
     Dates: start: 20040614, end: 20040614

REACTIONS (1)
  - HYPERSENSITIVITY [None]
